FAERS Safety Report 5738249-8 (Version None)
Quarter: 2008Q2

REPORT INFORMATION
  Report Type: 
  Country: None (occurrence: None)
  Receive Date: 20080514
  Receipt Date: 20080505
  Transmission Date: 20081010
  Serious: Yes (Other)
  Sender: FDA-Public Use
  Company Number: US-PFIZER INC-2008038864

PATIENT
  Age: 57 Year
  Sex: Female

DRUGS (1)
  1. CELEBREX [Suspect]

REACTIONS (4)
  - BLOOD PRESSURE FLUCTUATION [None]
  - MULTIPLE SCLEROSIS [None]
  - TINNITUS [None]
  - VERTIGO [None]
